FAERS Safety Report 14914115 (Version 1)
Quarter: 2018Q2

REPORT INFORMATION
  Report Type: Spontaneous
  Country: FR (occurrence: FR)
  Receive Date: 20180518
  Receipt Date: 20180518
  Transmission Date: 20180711
  Serious: Yes (Hospitalization)
  Sender: FDA-Public Use
  Company Number: FR-ABBVIE-18K-056-2359108-00

PATIENT
  Age: 62 Year
  Sex: Female
  Weight: 41 kg

DRUGS (3)
  1. HUMIRA [Suspect]
     Active Substance: ADALIMUMAB
     Indication: UVEITIS
     Route: 058
     Dates: start: 20180227, end: 20180427
  2. IMUREL [Interacting]
     Active Substance: AZATHIOPRINE SODIUM
     Indication: UVEITIS
     Route: 048
     Dates: end: 20180427
  3. CORTANCYL [Interacting]
     Active Substance: PREDNISONE
     Indication: UVEITIS
     Route: 048
     Dates: end: 20180427

REACTIONS (3)
  - Drug interaction [Not Recovered/Not Resolved]
  - Pulmonary tuberculosis [Not Recovered/Not Resolved]
  - Staphylococcal infection [Not Recovered/Not Resolved]

NARRATIVE: CASE EVENT DATE: 20180227
